FAERS Safety Report 15756730 (Version 1)
Quarter: 2018Q4

REPORT INFORMATION
  Report Type: Spontaneous
  Country: US (occurrence: US)
  Receive Date: 20181223
  Receipt Date: 20181223
  Transmission Date: 20190205
  Serious: No
  Sender: FDA-Public Use
  Company Number: None

PATIENT
  Age: 37 Year
  Sex: Female
  Weight: 68.4 kg

DRUGS (3)
  1. CLONAZEPAM 1 MG [Suspect]
     Active Substance: CLONAZEPAM
     Indication: SEIZURE
     Dosage: ?          QUANTITY:30 TABLET(S);?
     Route: 048
     Dates: start: 20181202, end: 20181223
  2. CLONAZEPAM 1 MG [Suspect]
     Active Substance: CLONAZEPAM
     Indication: PANIC DISORDER
     Dosage: ?          QUANTITY:30 TABLET(S);?
     Route: 048
     Dates: start: 20181202, end: 20181223
  3. RAINDIDNE 150 MG 1 TIME PER DAY [Concomitant]

REACTIONS (10)
  - Diarrhoea [None]
  - Dyspnoea [None]
  - Abdominal discomfort [None]
  - Chest discomfort [None]
  - Insomnia [None]
  - Headache [None]
  - Somnolence [None]
  - Product substitution issue [None]
  - Nausea [None]
  - Hangover [None]

NARRATIVE: CASE EVENT DATE: 20181202
